FAERS Safety Report 13627261 (Version 1)
Quarter: 2017Q2

REPORT INFORMATION
  Report Type: Spontaneous
  Country: US (occurrence: US)
  Receive Date: 20170607
  Receipt Date: 20170607
  Transmission Date: 20170830
  Serious: Yes (Other)
  Sender: FDA-Public Use
  Company Number: US-PFIZER INC-2017247915

PATIENT
  Age: 54 Year
  Sex: Female
  Weight: 86.64 kg

DRUGS (2)
  1. IBRANCE [Suspect]
     Active Substance: PALBOCICLIB
     Indication: BREAST CANCER METASTATIC
     Dosage: 125 MG, CYCLIC (CAPSULE DAILY 1-21 ON THREE WEEKS OFF ONE WEEK)
     Dates: start: 20161117, end: 20170515
  2. FASLODEX [Suspect]
     Active Substance: FULVESTRANT
     Indication: BREAST CANCER METASTATIC
     Dosage: UNK
     Dates: start: 20161117

REACTIONS (5)
  - White blood cell count decreased [Unknown]
  - Fatigue [Recovered/Resolved]
  - Skin reaction [Recovering/Resolving]
  - Neutrophil count decreased [Unknown]
  - Malaise [Recovered/Resolved]

NARRATIVE: CASE EVENT DATE: 20170509
